FAERS Safety Report 25069674 (Version 1)
Quarter: 2025Q1

REPORT INFORMATION
  Report Type: Spontaneous
  Country: PT (occurrence: PT)
  Receive Date: 20250312
  Receipt Date: 20250312
  Transmission Date: 20250409
  Serious: Yes (Other)
  Sender: MYLAN
  Company Number: PT-MYLANLABS-2025M1020724

PATIENT
  Age: 51 Year
  Sex: Male

DRUGS (5)
  1. FENTANYL [Interacting]
     Active Substance: FENTANYL
     Indication: Anxiety
     Dosage: 75 MICROGRAM, QH; EVERY 72 HOURS
  2. PREGABALIN [Interacting]
     Active Substance: PREGABALIN
     Indication: Pain
     Dosage: 25 MILLIGRAM, TID
  3. SENNA [Concomitant]
     Active Substance: SENNOSIDES
     Indication: Laxative supportive care
     Dosage: 12 MILLIGRAM, BID
  4. CLONAZEPAM [Concomitant]
     Active Substance: CLONAZEPAM
     Indication: Insomnia
     Dosage: 0.5 MILLIGRAM, HS (AT BEDTIME)
  5. MORPHINE [Concomitant]
     Active Substance: MORPHINE
     Indication: Pain
     Dosage: 20MG/ML, Q4H

REACTIONS (3)
  - Drug interaction [Recovered/Resolved]
  - Face oedema [Recovered/Resolved]
  - Tongue oedema [Recovered/Resolved]
